FAERS Safety Report 7574347-4 (Version None)
Quarter: 2011Q2

REPORT INFORMATION
  Report Type: 
  Country: None (occurrence: None)
  Receive Date: 20110627
  Receipt Date: 20110615
  Transmission Date: 20111010
  Serious: Yes (Other)
  Sender: FDA-Public Use
  Company Number: JP-MERCK-1105USA00366

PATIENT
  Age: 60 Year
  Sex: Male
  Weight: 63 kg

DRUGS (4)
  1. ZETIA [Concomitant]
     Indication: HYPERCHOLESTEROLAEMIA
     Route: 048
     Dates: start: 20071201, end: 20110501
  2. VOLTAREN [Concomitant]
     Indication: CERVICOBRACHIAL SYNDROME
     Dosage: ONE-TWICE/DAY
     Route: 048
     Dates: start: 20040301, end: 20110501
  3. NORVASC [Concomitant]
     Indication: HYPERTENSION
     Route: 048
     Dates: start: 20040101, end: 20110501
  4. PROPECIA [Suspect]
     Indication: ANDROGENETIC ALOPECIA
     Dosage: 0.25 MG DAILY
     Route: 048
     Dates: start: 20051226, end: 20110201

REACTIONS (4)
  - WRONG TECHNIQUE IN DRUG USAGE PROCESS [None]
  - MUSCLE RUPTURE [None]
  - MYALGIA [None]
  - SEMEN VOLUME DECREASED [None]
